FAERS Safety Report 11037991 (Version 1)
Quarter: 2015Q2

REPORT INFORMATION
  Report Type: Spontaneous
  Country: SE (occurrence: SE)
  Receive Date: 20150416
  Receipt Date: 20150416
  Transmission Date: 20150821
  Serious: Yes (Other)
  Sender: FDA-Public Use
  Company Number: SE-SA-2015SA039732

PATIENT
  Sex: Female

DRUGS (3)
  1. MULTAQ [Suspect]
     Active Substance: DRONEDARONE
     Indication: ATRIAL FIBRILLATION
     Route: 048
     Dates: start: 201412, end: 20150326
  2. MULTAQ [Suspect]
     Active Substance: DRONEDARONE
     Indication: ATRIAL FIBRILLATION
     Route: 048
     Dates: start: 2013
  3. SOTALOL. [Concomitant]
     Active Substance: SOTALOL

REACTIONS (4)
  - Condition aggravated [Unknown]
  - Pulmonary fibrosis [Unknown]
  - Cholelithiasis [Unknown]
  - Dyspnoea [Unknown]
